FAERS Safety Report 5789360-7 (Version None)
Quarter: 2008Q2

REPORT INFORMATION
  Report Type: 
  Country: None (occurrence: None)
  Receive Date: 20080625
  Receipt Date: 20080625
  Transmission Date: 20081010
  Serious: Yes (Hospitalization)
  Sender: FDA-Public Use
  Company Number: None

PATIENT
  Age: 32 Year
  Sex: Male
  Weight: 73.4827 kg

DRUGS (2)
  1. MORPHINE [Suspect]
     Indication: GOODPASTURE'S SYNDROME
     Dosage: 30 MG TWICE DAILY PO
     Route: 048
  2. MORPHINE [Suspect]
     Indication: RENAL FAILURE
     Dosage: 30 MG TWICE DAILY PO
     Route: 048

REACTIONS (6)
  - ABDOMINAL PAIN UPPER [None]
  - INCORRECT DOSE ADMINISTERED [None]
  - MALAISE [None]
  - NAUSEA [None]
  - RESPIRATORY DISTRESS [None]
  - VOMITING [None]
